FAERS Safety Report 4709874-8 (Version None)
Quarter: 2005Q3

REPORT INFORMATION
  Report Type: 
  Country: None (occurrence: None)
  Receive Date: 20050708
  Receipt Date: 20050629
  Transmission Date: 20060218
  Serious: Yes (Hospitalization)
  Sender: FDA-Public Use
  Company Number: US-ABBOTT-05P-163-0304478-02

PATIENT
  Sex: Male
  Weight: 87.8 kg

DRUGS (16)
  1. RITONAVIR SOFT GELATIN CAPSULES [Suspect]
     Indication: HIV INFECTION
     Route: 048
     Dates: start: 20040223
  2. TIPRANAVIR [Concomitant]
     Indication: HIV INFECTION
     Dates: start: 20050407
  3. ABACAVIR [Concomitant]
     Indication: HIV INFECTION
     Route: 048
     Dates: start: 20030312
  4. STAVUDINE [Concomitant]
     Indication: HIV INFECTION
     Route: 048
     Dates: start: 20030312
  5. ENFUVIRTIDE [Concomitant]
     Indication: HIV INFECTION
     Route: 058
     Dates: start: 20040308
  6. TENOFOVIR [Concomitant]
     Indication: HIV INFECTION
     Route: 048
     Dates: start: 20040308
  7. CITALOPRAM HYDROBROMIDE [Concomitant]
     Indication: DEPRESSION
     Route: 048
  8. ACETAMINOPHEN [Concomitant]
     Indication: HEADACHE
     Route: 048
  9. TEMAZEPAM [Concomitant]
     Indication: INSOMNIA
     Route: 048
  10. MULTI-VITAMINS [Concomitant]
     Indication: MEDICAL DIET
     Route: 048
  11. TESTOSTERONE [Concomitant]
     Indication: HYPOGONADISM
     Route: 030
  12. BACTRIM [Concomitant]
     Indication: INFECTION PROPHYLAXIS
     Route: 048
  13. LORAZEPAM [Concomitant]
     Indication: ANXIETY
  14. CALCIUM CARBONATE [Concomitant]
     Indication: MEDICAL DIET
     Route: 048
  15. IMIQUIMOD [Concomitant]
     Indication: PENIS CARCINOMA
     Route: 061
     Dates: start: 20050105
  16. TMC114 [Concomitant]
     Indication: HIV INFECTION
     Route: 048
     Dates: end: 20050531

REACTIONS (2)
  - ACUTE MYOCARDIAL INFARCTION [None]
  - CORONARY ARTERY DISEASE [None]
